FAERS Safety Report 23913960 (Version 2)
Quarter: 2024Q2

REPORT INFORMATION
  Report Type: Spontaneous
  Country: FR (occurrence: FR)
  Receive Date: 20240529
  Receipt Date: 20240611
  Transmission Date: 20240716
  Serious: Yes (Other)
  Sender: FDA-Public Use
  Company Number: None

PATIENT
  Age: 68 Year
  Sex: Male

DRUGS (5)
  1. CISPLATIN [Suspect]
     Active Substance: CISPLATIN
     Indication: Cholangiocarcinoma
     Dosage: TIME INTERVAL: 3 CYCLICAL: 40 MG PER COURSE.?3 CURES IN TOTAL.
     Route: 042
     Dates: start: 20240423, end: 20240425
  2. CISPLATIN [Suspect]
     Active Substance: CISPLATIN
     Indication: Cholangiocarcinoma
     Dosage: TIME INTERVAL: 6 CYCLICAL: 50 MG PER COURSE.?6 CURES IN TOTAL.
     Route: 042
     Dates: start: 20240229, end: 20240309
  3. IMFINZI [Suspect]
     Active Substance: DURVALUMAB
     Indication: Cholangiocarcinoma
     Dosage: TIME INTERVAL: CYCLICAL: EVERY 12 CYCLICAL, 1500 MG PER COURSE.12 CURES IN TOTAL.
     Route: 042
     Dates: start: 20240229, end: 20240502
  4. GEMCITABINE [Suspect]
     Active Substance: GEMCITABINE
     Indication: Cholangiocarcinoma
     Dosage: TIME INTERVAL: 6 CYCLICAL: 2000 MG PER COURSE.?6 CURES IN TOTAL.
     Route: 042
     Dates: start: 20240423, end: 20240502
  5. GEMCITABINE [Suspect]
     Active Substance: GEMCITABINE
     Indication: Cholangiocarcinoma
     Dosage: TIME INTERVAL: 6 CYCLICAL: 2000 MG PER COURSE.?6 CURES IN TOTAL.
     Route: 042
     Dates: start: 20240229, end: 20240309

REACTIONS (5)
  - Infected cyst [Recovered/Resolved]
  - Thrombocytopenia [Recovered/Resolved]
  - Oral fungal infection [Recovered/Resolved]
  - Neutropenia [Recovered/Resolved]
  - Carbuncle [Recovered/Resolved]

NARRATIVE: CASE EVENT DATE: 20240320
